APPROVED DRUG PRODUCT: ACETAZOLAMIDE
Active Ingredient: ACETAZOLAMIDE
Strength: 250MG
Dosage Form/Route: TABLET;ORAL
Application: A210588 | Product #002 | TE Code: AB
Applicant: NOVITIUM PHARMA LLC
Approved: Oct 17, 2019 | RLD: No | RS: No | Type: RX